FAERS Safety Report 9580594 (Version 1)
Quarter: 2013Q3

REPORT INFORMATION
  Report Type: Spontaneous
  Country: US (occurrence: None)
  Receive Date: 20130916
  Receipt Date: 20130916
  Transmission Date: 20140515
  Serious: Yes (Other)
  Sender: FDA-Public Use
  Company Number: JPI-P-033404

PATIENT
  Age: 48 Year
  Sex: Female
  Weight: 97.52 kg

DRUGS (2)
  1. XYREM [Suspect]
     Indication: INSOMNIA
     Dosage: 4.5 GRAIN (2.25 GRAIN, 2 IN 1 D)
     Route: 048
     Dates: start: 20130521, end: 2013
  2. ALBUTEROL [Suspect]
     Indication: ASTHMA
     Dosage: INHALATION
     Dates: start: 201304

REACTIONS (2)
  - Blood pressure increased [None]
  - Nocturia [None]
